FAERS Safety Report 10202045 (Version 1)
Quarter: 2014Q2

REPORT INFORMATION
  Report Type: Spontaneous
  Country: US (occurrence: US)
  Receive Date: 20140528
  Receipt Date: 20140528
  Transmission Date: 20141212
  Serious: Yes (Hospitalization)
  Sender: FDA-Public Use
  Company Number: US-GLAXOSMITHKLINE-A1074020A

PATIENT
  Age: 70 Year
  Sex: Male

DRUGS (3)
  1. AVODART [Suspect]
     Indication: PROSTATIC DISORDER
     Dosage: .5MG PER DAY
     Route: 048
     Dates: start: 2005
  2. NEXIUM [Concomitant]
  3. METFORMIN [Concomitant]

REACTIONS (4)
  - Coronary arterial stent insertion [Recovered/Resolved]
  - Renal surgery [Recovered/Resolved]
  - Food allergy [Recovered/Resolved]
  - Dyspnoea [Recovered/Resolved]
